FAERS Safety Report 25003873 (Version 2)
Quarter: 2025Q2

REPORT INFORMATION
  Report Type: Report from Study
  Country: CH (occurrence: CH)
  Receive Date: 20250224
  Receipt Date: 20250409
  Transmission Date: 20250717
  Serious: Yes (Death)
  Sender: ROCHE
  Company Number: CH-SM-2025-00719

PATIENT
  Age: 3 Year

DRUGS (1)
  1. EVRYSDI [Suspect]
     Active Substance: RISDIPLAM
     Indication: Spinal muscular atrophy
     Route: 048
     Dates: start: 20230919

REACTIONS (4)
  - Cardiac failure acute [Fatal]
  - Influenza [Fatal]
  - Constipation [Unknown]
  - Respiratory disorder [Unknown]
